FAERS Safety Report 7621789-4 (Version None)
Quarter: 2011Q3

REPORT INFORMATION
  Report Type: 
  Country: None (occurrence: None)
  Receive Date: 20110720
  Receipt Date: 20110712
  Transmission Date: 20111222
  Serious: Yes (Other)
  Sender: FDA-Public Use
  Company Number: FR-AMGEN-FRASP2011035758

PATIENT
  Age: 75 Year
  Sex: Male

DRUGS (1)
  1. ENBREL [Suspect]
     Indication: PRODUCT USED FOR UNKNOWN INDICATION
     Dosage: 50 MG, FREQUENCY UNKNOWN
     Dates: start: 20090101, end: 20110622

REACTIONS (5)
  - FATIGUE [None]
  - NIGHT SWEATS [None]
  - PYREXIA [None]
  - LUNG NEOPLASM [None]
  - CHEST PAIN [None]
